FAERS Safety Report 8333225-3 (Version None)
Quarter: 2012Q2

REPORT INFORMATION
  Report Type: 
  Country: None (occurrence: None)
  Receive Date: 20120503
  Receipt Date: 20120430
  Transmission Date: 20120825
  Serious: Yes (Other)
  Sender: FDA-Public Use
  Company Number: US-PFIZER INC-2012106799

PATIENT
  Sex: Male
  Weight: 317.46 kg

DRUGS (1)
  1. VIAGRA [Suspect]
     Indication: PENIS DISORDER
     Dosage: 700 MG, 4X/DAY
     Route: 048
     Dates: start: 20050101

REACTIONS (4)
  - NASOPHARYNGITIS [None]
  - EXPIRED DRUG ADMINISTERED [None]
  - INCORRECT DOSE ADMINISTERED [None]
  - PENILE DISCHARGE [None]
